FAERS Safety Report 9437346 (Version 1)
Quarter: 2013Q3

REPORT INFORMATION
  Report Type: Spontaneous
  Country: GB (occurrence: None)
  Receive Date: 20130731
  Receipt Date: 20130731
  Transmission Date: 20140515
  Serious: Yes (Hospitalization)
  Sender: FDA-Public Use
  Company Number: FK201302781

PATIENT
  Age: 80 Year
  Sex: Male

DRUGS (11)
  1. FUROSEMIDE [Suspect]
     Indication: HYPERTENSION
     Dates: start: 2012
  2. PLACEBO (PLACEBO) [Suspect]
     Indication: CARDIOVASCULAR EVENT PROPHYLAXIS
     Route: 048
     Dates: start: 20130520, end: 20130521
  3. WARFARIN SODIUM (WARFARIN SODIUM) [Suspect]
     Indication: ATRIAL FIBRILLATION
     Dates: start: 2010, end: 20130522
  4. BISOPROLOL (BISOPROLOL) [Concomitant]
  5. CANDESARTAN (CANDESARTAN) [Concomitant]
  6. COLCHICINE (COLCHICINE) [Concomitant]
  7. CO-PROXAMOL (APOREX) [Concomitant]
  8. FEXOFENADINE HYDROCHLORIDE (FEXOFENADINE HYDROCHLORIDE) [Concomitant]
  9. MORPHINE [Concomitant]
  10. PREDNISOLONE (PREDNISOLONE) [Concomitant]
  11. SIMVASTATIN (SIMVASTATIN) [Concomitant]

REACTIONS (3)
  - Epistaxis [None]
  - Gamma-glutamyltransferase increased [None]
  - Nasal polyps [None]
